FAERS Safety Report 8500537-X (Version None)
Quarter: 2012Q3

REPORT INFORMATION
  Report Type: 
  Country: None (occurrence: None)
  Receive Date: 20120710
  Receipt Date: 20120705
  Transmission Date: 20120928
  Serious: Yes (Other)
  Sender: FDA-Public Use
  Company Number: US-ROCHE-1015986

PATIENT
  Sex: Male
  Weight: 90.346 kg

DRUGS (19)
  1. PEGASYS [Suspect]
     Indication: HEPATITIS C
     Route: 058
     Dates: start: 20110803
  2. PEGASYS [Suspect]
     Dates: start: 20120401
  3. REYATAZ [Concomitant]
     Indication: HIV INFECTION
     Route: 048
     Dates: start: 20080421
  4. TRUVADA [Concomitant]
     Indication: HIV INFECTION
     Route: 048
     Dates: start: 20080421
  5. LOMOTIL [Concomitant]
     Indication: DIARRHOEA
  6. GABAPENTIN [Concomitant]
     Dosage: 7 AM AND 2 PM
  7. PEGASYS [Suspect]
     Indication: HIV INFECTION
     Dates: start: 20111102
  8. PEGASYS [Suspect]
     Route: 058
     Dates: start: 20110803, end: 20120601
  9. PEGASYS [Suspect]
     Route: 058
     Dates: start: 20110308, end: 20120106
  10. TRAZODONE HYDROCHLORIDE [Suspect]
     Indication: PRODUCT USED FOR UNKNOWN INDICATION
     Route: 065
  11. TRAZODONE HYDROCHLORIDE [Suspect]
     Route: 065
  12. RIBAVIRIN [Suspect]
     Route: 048
     Dates: start: 20111102
  13. LIPITOR [Concomitant]
  14. RIBAVIRIN [Suspect]
     Indication: HEPATITIS C
     Dosage: IN DIVIDED DOSES
     Route: 048
     Dates: start: 20110803
  15. RIBAVARIN [Suspect]
     Route: 048
     Dates: start: 20110803, end: 20120601
  16. FENOFIBRATE [Concomitant]
  17. TRAZODONE HCL [Concomitant]
     Dosage: 2GRAM AT NIGHT
  18. LEXAPRO [Concomitant]
     Dosage: 2 GM AT MORNING
  19. ZOFRAN [Concomitant]
     Dosage: N/V

REACTIONS (17)
  - FALL [None]
  - FATIGUE [None]
  - THROMBOCYTOPENIA [None]
  - PRURITUS [None]
  - SKIN DISORDER [None]
  - NEUTROPENIA [None]
  - PLATELET COUNT DECREASED [None]
  - RESPIRATORY TRACT INFECTION [None]
  - DECREASED APPETITE [None]
  - RASH GENERALISED [None]
  - BASAL CELL CARCINOMA [None]
  - NEUTROPHIL COUNT DECREASED [None]
  - ECZEMA [None]
  - SKELETAL INJURY [None]
  - HEAD INJURY [None]
  - HYPOTONIA [None]
  - SKIN ULCER [None]
